FAERS Safety Report 4578618-5 (Version None)
Quarter: 2005Q1

REPORT INFORMATION
  Report Type: 
  Country: None (occurrence: None)
  Receive Date: 20050209
  Receipt Date: 20050128
  Transmission Date: 20050727
  Serious: Yes (Other)
  Sender: FDA-Public Use
  Company Number: HQWYE635914JAN05

PATIENT
  Age: 74 Year
  Sex: Male

DRUGS (7)
  1. TRANGOREX (AMIODARONE, TABLET) [Suspect]
     Indication: ARRHYTHMIA
     Dosage: 1 UNIT 2X PER 1 DAY ORAL
     Route: 048
  2. TRANGOREX (AMIODARONE, TABLET) [Suspect]
     Indication: ATRIAL FIBRILLATION
     Dosage: 1 UNIT 2X PER 1 DAY ORAL
     Route: 048
  3. DABONAL (ENALAPRIL MALEATE) [Concomitant]
  4. DINISOR (DILTIAZEM HYDROCHLORIDE) [Concomitant]
  5. SINTROM [Concomitant]
  6. TRUSOPT [Concomitant]
  7. ELEBLOC (CARTEOLOL HYDROCHLRIDE) [Concomitant]

REACTIONS (12)
  - BLOOD BILIRUBIN INCREASED [None]
  - BODY TEMPERATURE INCREASED [None]
  - BUNDLE BRANCH BLOCK RIGHT [None]
  - CHEST PAIN [None]
  - DYSPNOEA [None]
  - ELECTROCARDIOGRAM T WAVE INVERSION [None]
  - FLATULENCE [None]
  - HEPATIC STEATOSIS [None]
  - NEUTROPHIL PERCENTAGE INCREASED [None]
  - PRODUCTIVE COUGH [None]
  - RESPIRATORY TRACT INFECTION [None]
  - TRANSAMINASES INCREASED [None]
